FAERS Safety Report 19064250 (Version 1)
Quarter: 2021Q1

REPORT INFORMATION
  Report Type: Report from Study
  Country: US (occurrence: US)
  Receive Date: 20210326
  Receipt Date: 20210326
  Transmission Date: 20210420
  Serious: Yes (Death)
  Sender: FDA-Public Use
  Company Number: US-PFIZER INC-2021323641

PATIENT
  Age: 70 Year

DRUGS (2)
  1. DOPAMINE HCL [Suspect]
     Active Substance: DOPAMINE HYDROCHLORIDE
     Indication: ACUTE KIDNEY INJURY
     Dosage: UNK
  2. FUROSEMIDE. [Suspect]
     Active Substance: FUROSEMIDE
     Indication: ACUTE KIDNEY INJURY
     Dosage: 200?400 MG

REACTIONS (3)
  - Sepsis [Fatal]
  - Drug ineffective [Fatal]
  - Renal failure [Fatal]
